FAERS Safety Report 15982097 (Version 1)
Quarter: 2019Q1

REPORT INFORMATION
  Report Type: Spontaneous
  Country: CN (occurrence: CN)
  Receive Date: 20190219
  Receipt Date: 20190219
  Transmission Date: 20190418
  Serious: Yes (Other)
  Sender: FDA-Public Use
  Company Number: CN-JNJFOC-20190218997

PATIENT
  Age: 51 Year
  Sex: Female
  Weight: 45 kg

DRUGS (2)
  1. RISPERDAL [Suspect]
     Active Substance: RISPERIDONE
     Indication: CONVERSION DISORDER
     Route: 048
     Dates: start: 20180610
  2. RISPERDAL [Suspect]
     Active Substance: RISPERIDONE
     Indication: CONVERSION DISORDER
     Route: 048
     Dates: start: 20180616, end: 20180619

REACTIONS (3)
  - Rhinalgia [Recovered/Resolved]
  - Nasal congestion [Recovered/Resolved]
  - Nasal obstruction [Recovered/Resolved]

NARRATIVE: CASE EVENT DATE: 20180619
